FAERS Safety Report 7791496-6 (Version None)
Quarter: 2011Q4

REPORT INFORMATION
  Report Type: 
  Country: None (occurrence: None)
  Receive Date: 20111003
  Receipt Date: 20110923
  Transmission Date: 20120403
  Serious: Yes (Other)
  Sender: FDA-Public Use
  Company Number: US-JNJFOC-20110911618

PATIENT
  Sex: Female
  Weight: 48.54 kg

DRUGS (2)
  1. RISPERIDONE [Suspect]
     Indication: AGITATION
     Route: 048
     Dates: start: 20110701
  2. RISPERIDONE [Suspect]
     Route: 048
     Dates: start: 20110611, end: 20110701

REACTIONS (5)
  - HEART RATE IRREGULAR [None]
  - RHINORRHOEA [None]
  - UPPER-AIRWAY COUGH SYNDROME [None]
  - FEELING HOT [None]
  - COUGH [None]
